FAERS Safety Report 9728433 (Version 1)
Quarter: 2013Q4

REPORT INFORMATION
  Report Type: Spontaneous
  Country: US (occurrence: None)
  Receive Date: 20131203
  Receipt Date: 20131203
  Transmission Date: 20140711
  Serious: Yes (Other)
  Sender: FDA-Public Use
  Company Number: None

PATIENT
  Age: 67 Year
  Sex: Female
  Weight: 52.3 kg

DRUGS (3)
  1. VELAGLUCERASE ALFA [Suspect]
     Indication: GAUCHER^S DISEASE
     Dosage: 60 IU/KG EVERY 2 WEEKS IV
     Route: 042
     Dates: start: 20091001
  2. FORTEO SC [Concomitant]
  3. CALCIUM/VITAMIN D [Concomitant]

REACTIONS (1)
  - Renal cell carcinoma [None]
